FAERS Safety Report 11571283 (Version 1)
Quarter: 2015Q3

REPORT INFORMATION
  Report Type: Spontaneous
  Country: US (occurrence: US)
  Receive Date: 20150929
  Receipt Date: 20150929
  Transmission Date: 20151125
  Serious: No
  Sender: FDA-Public Use
  Company Number: US-BANPHARM-20153844

PATIENT
  Age: 58 Year
  Sex: Female
  Weight: 95.25 kg

DRUGS (1)
  1. LOPERAMIDE HCL [Suspect]
     Active Substance: LOPERAMIDE HYDROCHLORIDE
     Indication: DIARRHOEA
     Route: 048
     Dates: start: 20150422, end: 20150423

REACTIONS (1)
  - Drug effect incomplete [Unknown]
